FAERS Safety Report 5453187-6 (Version None)
Quarter: 2007Q3

REPORT INFORMATION
  Report Type: 
  Country: None (occurrence: None)
  Receive Date: 20070914
  Receipt Date: 20070904
  Transmission Date: 20080115
  Serious: Yes (Hospitalization, Other)
  Sender: FDA-Public Use
  Company Number: US-MERCK-0708USA04212

PATIENT
  Age: 68 Year
  Sex: Male
  Weight: 76 kg

DRUGS (18)
  1. MEVACOR [Suspect]
     Indication: HYPERCHOLESTEROLAEMIA
     Route: 048
  2. MEVACOR [Suspect]
     Route: 048
  3. MEVACOR [Suspect]
     Route: 048
  4. RANEXA [Suspect]
     Indication: ANGINA PECTORIS
     Route: 048
     Dates: start: 20061206, end: 20061213
  5. TOPROL-XL [Concomitant]
     Route: 065
  6. NITROGLYCERIN [Concomitant]
     Route: 065
  7. PLAVIX [Concomitant]
     Route: 065
  8. VITAMINS (UNSPECIFIED) [Concomitant]
     Route: 065
  9. UBIDECARENONE [Concomitant]
     Route: 065
  10. DIOVAN [Concomitant]
     Route: 065
  11. ZANTAC 150 [Concomitant]
     Route: 065
  12. ECOTRIN [Concomitant]
     Route: 065
  13. FLOMAX (MORNIFLUMATE) [Concomitant]
     Route: 065
  14. GLUCOPHAGE [Concomitant]
     Route: 065
  15. MAXEPA [Concomitant]
     Route: 065
  16. FOLTX [Concomitant]
     Route: 065
  17. LYCOPENE [Concomitant]
     Route: 065
  18. VASOTEC [Concomitant]
     Route: 048

REACTIONS (18)
  - ALANINE AMINOTRANSFERASE INCREASED [None]
  - ANGINA PECTORIS [None]
  - ASPARTATE AMINOTRANSFERASE INCREASED [None]
  - BUNDLE BRANCH BLOCK RIGHT [None]
  - CORONARY ARTERY OCCLUSION [None]
  - DIABETES MELLITUS [None]
  - DRUG ADMINISTRATION ERROR [None]
  - DRUG INTERACTION [None]
  - GASTROOESOPHAGEAL REFLUX DISEASE [None]
  - HYPOKALAEMIA [None]
  - INGUINAL HERNIA [None]
  - MYOCARDIAL INFARCTION [None]
  - PROSTATE CANCER [None]
  - RENAL FAILURE ACUTE [None]
  - RENAL FAILURE CHRONIC [None]
  - RHABDOMYOLYSIS [None]
  - STRESS [None]
  - WEIGHT DECREASED [None]
